FAERS Safety Report 12089172 (Version 1)
Quarter: 2016Q1

REPORT INFORMATION
  Report Type: Spontaneous
  Country: US (occurrence: None)
  Receive Date: 20160217
  Receipt Date: 20160217
  Transmission Date: 20160526
  Serious: Yes (Life-Threatening)
  Sender: FDA-Public Use
  Company Number: None

PATIENT
  Age: 62 Year
  Sex: Male
  Weight: 82.56 kg

DRUGS (8)
  1. AZELESTINE HCL [Concomitant]
  2. LIPITOR [Concomitant]
     Active Substance: ATORVASTATIN CALCIUM
  3. METOPROLOL. [Concomitant]
     Active Substance: METOPROLOL
  4. CLEARLAX [Suspect]
     Active Substance: POLYETHYLENE GLYCOL 3350
     Indication: POST PROCEDURAL CONSTIPATION
     Dosage: 8.5 CAPS IN 32 OZ GATORADE, 1 TIME, TAKEN BY MOUTH
     Dates: start: 20160215
  5. GLUCOSAMINE [Concomitant]
     Active Substance: GLUCOSAMINE
  6. PRILOSEC [Concomitant]
     Active Substance: OMEPRAZOLE MAGNESIUM
  7. ASA [Concomitant]
     Active Substance: ASPIRIN
  8. MULTI-VITAMIN [Concomitant]
     Active Substance: .ALPHA.-TOCOPHEROL ACETATE, DL-\ASCORBIC ACID\CYANOCOBALAMIN\FLUORIDE ION\FOLIC ACID\NIACIN\PYRIDOXINE\RIBOFLAVIN\THIAMINE\VITAMIN A\VITAMIN D

REACTIONS (4)
  - Throat tightness [None]
  - Flushing [None]
  - Hypotension [None]
  - Erythema [None]

NARRATIVE: CASE EVENT DATE: 20160215
